FAERS Safety Report 8579210 (Version 4)
Quarter: 2013Q2

REPORT INFORMATION
  Report Type: Spontaneous
  Country: ES (occurrence: ES)
  Receive Date: 20120524
  Receipt Date: 20130417
  Transmission Date: 20140414
  Serious: Yes (Hospitalization)
  Sender: FDA-Public Use
  Company Number: ES-ABBOTT-12P-144-0936267-00

PATIENT
  Age: 37 Year
  Sex: Female

DRUGS (6)
  1. HUMIRA 40 MG/ 0.8 ML PRE-FILLED SYRINGE [Suspect]
     Indication: RHEUMATOID ARTHRITIS
     Route: 058
     Dates: start: 200307, end: 200511
  2. CELECOXIB [Concomitant]
     Indication: RHEUMATOID ARTHRITIS
  3. TRAMADOL [Concomitant]
     Indication: RHEUMATOID ARTHRITIS
  4. PREDNISONA [Concomitant]
     Indication: PRODUCT USED FOR UNKNOWN INDICATION
  5. LEFLUNOMIDE [Concomitant]
     Indication: RHEUMATOID ARTHRITIS
     Dates: start: 200406
  6. LEFLUNOMIDE [Concomitant]
     Dates: start: 200609

REACTIONS (1)
  - Crohn^s disease [Recovered/Resolved]
